FAERS Safety Report 15433462 (Version 1)
Quarter: 2018Q3

REPORT INFORMATION
  Report Type: Spontaneous
  Country: US (occurrence: US)
  Receive Date: 20180927
  Receipt Date: 20180927
  Transmission Date: 20181010
  Serious: Yes (Other)
  Sender: FDA-Public Use
  Company Number: PHEH2018US039754

PATIENT
  Sex: Female
  Weight: 39.3 kg

DRUGS (3)
  1. CYCLOPHOSPHAMIDE. [Concomitant]
     Active Substance: CYCLOPHOSPHAMIDE
     Indication: PRODUCT USED FOR UNKNOWN INDICATION
     Dosage: UNK
     Route: 065
     Dates: start: 20180418, end: 20180419
  2. FLUDARABINE [Concomitant]
     Active Substance: FLUDARABINE PHOSPHATE
     Indication: PRODUCT USED FOR UNKNOWN INDICATION
     Dosage: UNK
     Route: 065
     Dates: start: 20180418, end: 20180421
  3. KYMRIAH [Suspect]
     Active Substance: TISAGENLECLEUCEL
     Indication: ACUTE LYMPHOCYTIC LEUKAEMIA
     Dosage: 2.0X10.6 CAR +VIABLE T CELLS/KG
     Route: 042
     Dates: start: 20180424

REACTIONS (7)
  - Pyrexia [Recovered/Resolved]
  - Hypotension [Recovered/Resolved]
  - Neurotoxicity [Unknown]
  - Hypoxia [Unknown]
  - Cytokine release syndrome [Unknown]
  - Coagulopathy [Unknown]
  - Tremor [Not Recovered/Not Resolved]
